FAERS Safety Report 12631572 (Version 2)
Quarter: 2016Q3

REPORT INFORMATION
  Report Type: Spontaneous
  Country: US (occurrence: US)
  Receive Date: 20160808
  Receipt Date: 20160808
  Transmission Date: 20161109
  Serious: No
  Sender: FDA-Public Use
  Company Number: US-BEH-2015054725

PATIENT
  Sex: Male
  Weight: 69 kg

DRUGS (23)
  1. TEMAZEPAM. [Concomitant]
     Active Substance: TEMAZEPAM
  2. SIMVASTATIN. [Concomitant]
     Active Substance: SIMVASTATIN
  3. KETOTIFEN [Concomitant]
     Active Substance: KETOTIFEN
  4. MULTIVITAMIN [Concomitant]
     Active Substance: VITAMINS
  5. VENTOLIN [Concomitant]
     Active Substance: ALBUTEROL SULFATE
  6. SPIRIVA [Concomitant]
     Active Substance: TIOTROPIUM BROMIDE MONOHYDRATE
  7. XOLAIR [Concomitant]
     Active Substance: OMALIZUMAB
  8. EPIPEN [Concomitant]
     Active Substance: EPINEPHRINE
  9. CROMOLYN [Concomitant]
     Active Substance: CROMOLYN
  10. FISH OIL [Concomitant]
     Active Substance: FISH OIL
  11. CALCIUM [Concomitant]
     Active Substance: CALCIUM
  12. DIPHENHYDRAMINE. [Concomitant]
     Active Substance: DIPHENHYDRAMINE
     Indication: ANAPHYLACTIC REACTION
  13. MORPHINE [Concomitant]
     Active Substance: MORPHINE
  14. GEMFIBROZIL. [Concomitant]
     Active Substance: GEMFIBROZIL
  15. HIZENTRA [Suspect]
     Active Substance: HUMAN IMMUNOGLOBULIN G
     Indication: IMMUNODEFICIENCY COMMON VARIABLE
     Route: 058
  16. ZYRTEC [Concomitant]
     Active Substance: CETIRIZINE HYDROCHLORIDE
  17. ACETAMINOPHEN. [Concomitant]
     Active Substance: ACETAMINOPHEN
     Indication: ANAPHYLACTIC REACTION
  18. COLACE [Concomitant]
     Active Substance: DOCUSATE SODIUM
  19. LISINOPRIL. [Concomitant]
     Active Substance: LISINOPRIL
  20. SOMA [Concomitant]
     Active Substance: CARISOPRODOL
  21. ADVAIR HFA [Concomitant]
     Active Substance: FLUTICASONE PROPIONATE\SALMETEROL XINAFOATE
  22. PERCOCET [Concomitant]
     Active Substance: ACETAMINOPHEN\OXYCODONE HYDROCHLORIDE
  23. DOCUSATE [Concomitant]
     Active Substance: DOCUSATE

REACTIONS (4)
  - Infusion site rash [Unknown]
  - Unevaluable event [Unknown]
  - Fatigue [Unknown]
  - Chest discomfort [Unknown]
